FAERS Safety Report 5599090-2 (Version None)
Quarter: 2008Q1

REPORT INFORMATION
  Report Type: 
  Country: None (occurrence: None)
  Receive Date: 20080122
  Receipt Date: 20080111
  Transmission Date: 20080703
  Serious: Yes (Hospitalization)
  Sender: FDA-Public Use
  Company Number: FR-BOEHRINGER INGELHEIM PHARMACEUTICALS, INC.-2008-FF-00024FF

PATIENT
  Sex: Male

DRUGS (3)
  1. VIRAMUNE [Suspect]
     Indication: HIV INFECTION
     Route: 048
     Dates: start: 20071109, end: 20071117
  2. VANCOMYCIN [Suspect]
     Indication: INFECTION
     Route: 042
     Dates: start: 20071109, end: 20071130
  3. KIVEXA [Concomitant]

REACTIONS (1)
  - AGRANULOCYTOSIS [None]
